FAERS Safety Report 12956724 (Version 4)
Quarter: 2017Q1

REPORT INFORMATION
  Report Type: Spontaneous
  Country: US (occurrence: US)
  Receive Date: 20161119
  Receipt Date: 20170320
  Transmission Date: 20170428
  Serious: Yes (Hospitalization)
  Sender: FDA-Public Use
  Company Number: US-BAXTER-2016BAX048150

PATIENT
  Sex: Female

DRUGS (1)
  1. DIANEAL LOW CALCIUM PERITONEAL DIALYSIS SOLUTION WITH DEXTROSE [Suspect]
     Active Substance: CALCIUM CHLORIDE\DEXTROSE\MAGNESIUM CHLORIDE\SODIUM CHLORIDE\SODIUM LACTATE
     Indication: PERITONEAL DIALYSIS
     Route: 033

REACTIONS (15)
  - Gangrene [Unknown]
  - Pneumonia [Unknown]
  - Peripheral swelling [Unknown]
  - Pleural effusion [Unknown]
  - Gout [Unknown]
  - Induration [Unknown]
  - Cardiac failure [Unknown]
  - Thrombosis [Unknown]
  - Hypotension [Unknown]
  - Anaemia [Unknown]
  - Weight decreased [Unknown]
  - Diabetes mellitus [Unknown]
  - Breast swelling [Unknown]
  - Blood pressure abnormal [Unknown]
  - Skin discolouration [Unknown]
